FAERS Safety Report 5615303-2 (Version None)
Quarter: 2008Q1

REPORT INFORMATION
  Report Type: 
  Country: None (occurrence: None)
  Receive Date: 20080204
  Receipt Date: 20080204
  Transmission Date: 20080703
  Serious: Yes (Life-Threatening, Hospitalization)
  Sender: FDA-Public Use
  Company Number: None

PATIENT
  Age: 80 Year
  Sex: Male

DRUGS (2)
  1. WARFARIN SODIUM [Suspect]
     Indication: ATRIAL FIBRILLATION
     Dosage: 3MG EVERY DAY PO
     Route: 048
     Dates: start: 19970417, end: 20071024
  2. CEFUROXIME [Suspect]
     Dosage: 500MG BID PO
     Route: 048
     Dates: start: 20070910, end: 20070919

REACTIONS (11)
  - ABASIA [None]
  - ARTHRALGIA [None]
  - ATRIAL FIBRILLATION [None]
  - BACK PAIN [None]
  - DIZZINESS [None]
  - FALL [None]
  - HAEMORRHAGE [None]
  - INTERNATIONAL NORMALISED RATIO INCREASED [None]
  - PERITONEAL HAEMORRHAGE [None]
  - TOOTH ABSCESS [None]
  - TOOTH INFECTION [None]
